FAERS Safety Report 9925263 (Version 1)
Quarter: 2014Q1

REPORT INFORMATION
  Report Type: Spontaneous
  Country: US (occurrence: US)
  Receive Date: 20140226
  Receipt Date: 20140226
  Transmission Date: 20141002
  Serious: Yes (Life-Threatening, Hospitalization)
  Sender: FDA-Public Use
  Company Number: US-BRACCO-010202

PATIENT
  Age: 68 Year
  Sex: Female
  Weight: 62 kg

DRUGS (13)
  1. TYLENOL [Concomitant]
     Indication: MIGRAINE
     Dosage: AS NEEDED
     Route: 048
     Dates: start: 20090319
  2. FERROUS SULFATE [Concomitant]
     Indication: SUPPLEMENTATION THERAPY
     Route: 048
     Dates: start: 20110420
  3. FLUTICASONE [Concomitant]
     Indication: RHINITIS ALLERGIC
     Route: 045
     Dates: start: 20121220
  4. ISOVUE 300 [Suspect]
     Indication: ANGIOGRAM
     Dates: start: 20131010, end: 20131010
  5. CETIRIZINE [Concomitant]
     Indication: RHINITIS ALLERGIC
     Dosage: AS NEEDED
     Route: 048
     Dates: start: 20120206
  6. OXYCODONE / ACETAMINOPHEN [Concomitant]
     Indication: SKIN ULCER
     Dosage: 325/5 MG PRN
     Route: 048
     Dates: start: 20131005
  7. ISOVUE 300 [Suspect]
     Indication: ARTERIOGRAM
     Dates: start: 20131010, end: 20131010
  8. MULTIVITAMIN [Concomitant]
     Indication: SUPPLEMENTATION THERAPY
     Route: 048
     Dates: start: 20110420
  9. VITAMIN D [Concomitant]
     Indication: SUPPLEMENTATION THERAPY
     Route: 048
     Dates: start: 20110420
  10. CALCIUM [Concomitant]
     Indication: NUTRITIONAL SUPPLEMENTATION
     Route: 048
     Dates: start: 20110420
  11. INVESTIGATIONAL DRUG [Suspect]
     Indication: CHRONIC OBSTRUCTIVE PULMONARY DISEASE
     Route: 048
     Dates: start: 20130220, end: 20131009
  12. XYLOCAINE [Concomitant]
     Dates: start: 20131010, end: 20131010
  13. EPINEPHRINE [Concomitant]
     Dates: start: 20131010, end: 20131010

REACTIONS (1)
  - Anaphylactic reaction [Recovered/Resolved]
